FAERS Safety Report 8923988 (Version 1)
Quarter: 2012Q4

REPORT INFORMATION
  Report Type: Spontaneous
  Country: US (occurrence: None)
  Receive Date: 20121121
  Receipt Date: 20121121
  Transmission Date: 20130627
  Serious: No
  Sender: FDA-Public Use
  Company Number: None

PATIENT
  Age: 48 Year
  Sex: Male

DRUGS (2)
  1. CLINDAMYCIN [Suspect]
     Indication: TOOTH INFECTION
     Dates: start: 20110515, end: 20110525
  2. CLINDAMYCIN [Suspect]
     Indication: SINUSITIS
     Dates: start: 20110515, end: 20110525

REACTIONS (9)
  - Drug-induced liver injury [None]
  - Transaminases increased [None]
  - Jaundice [None]
  - Blood bilirubin increased [None]
  - Blood alkaline phosphatase increased [None]
  - Fatigue [None]
  - Nausea [None]
  - Vomiting [None]
  - Pyrexia [None]
